FAERS Safety Report 7940967-8 (Version None)
Quarter: 2011Q4

REPORT INFORMATION
  Report Type: 
  Country: None (occurrence: None)
  Receive Date: 20111128
  Receipt Date: 20111116
  Transmission Date: 20120403
  Serious: Yes (Hospitalization, Other)
  Sender: FDA-Public Use
  Company Number: PHHY2011NO100657

PATIENT
  Sex: Female

DRUGS (4)
  1. ENBREL [Suspect]
     Indication: PSORIATIC ARTHROPATHY
     Route: 058
     Dates: start: 20031101, end: 20070301
  2. TRISEQUENS [Suspect]
     Dosage: 1 DF, QD
     Route: 048
     Dates: start: 20070301
  3. SIMPONI [Suspect]
     Indication: PSORIATIC ARTHROPATHY
     Route: 058
     Dates: start: 20101021, end: 20110201
  4. METHOTREXATE [Suspect]
     Dosage: 7.5 MG, PER WEEK PERIODICALLY
     Route: 048
     Dates: start: 19971201, end: 20110101

REACTIONS (3)
  - BREAST CANCER STAGE II [None]
  - BREAST CANCER STAGE I [None]
  - PSORIATIC ARTHROPATHY [None]
